FAERS Safety Report 8335110-X (Version None)
Quarter: 2012Q2

REPORT INFORMATION
  Report Type: 
  Country: None (occurrence: None)
  Receive Date: 20120503
  Receipt Date: 20120424
  Transmission Date: 20120825
  Serious: Yes (Other)
  Sender: FDA-Public Use
  Company Number: CHPA2012CA005649

PATIENT
  Age: 50 Year
  Sex: Male

DRUGS (2)
  1. OTRIVIN [Suspect]
     Indication: HYPERSENSITIVITY
     Dosage: UNK, 10 TIMES A DAY
     Route: 045
  2. OTRIVIN [Suspect]
     Dosage: UNK, UNK

REACTIONS (7)
  - OVERDOSE [None]
  - INFECTION [None]
  - NASAL CONGESTION [None]
  - CONDITION AGGRAVATED [None]
  - DRUG DEPENDENCE [None]
  - DYSGEUSIA [None]
  - DRUG INEFFECTIVE [None]
